FAERS Safety Report 9097987 (Version 4)
Quarter: 2015Q4

REPORT INFORMATION
  Report Type: Report from Study
  Country: CN (occurrence: CN)
  Receive Date: 20130212
  Receipt Date: 20151216
  Transmission Date: 20160305
  Serious: Yes (Death, Life-Threatening, Hospitalization)
  Sender: FDA-Public Use
  Company Number: CN-PFIZER INC-2013049422

PATIENT
  Age: 33 Year
  Sex: Male
  Weight: 74.5 kg

DRUGS (8)
  1. SODIUM BICARBONATE. [Concomitant]
     Active Substance: SODIUM BICARBONATE
     Indication: HYPERURICAEMIA
     Dosage: UNK
     Route: 048
     Dates: start: 20121011, end: 20130110
  2. RAMIPRIL. [Concomitant]
     Active Substance: RAMIPRIL
     Indication: PROTEINURIA
  3. RAMIPRIL. [Concomitant]
     Active Substance: RAMIPRIL
     Indication: BLOOD PRESSURE ABNORMAL
     Dosage: UNK
     Route: 048
     Dates: start: 20121011
  4. DILTIAZEM HYDROCHLORIDE. [Concomitant]
     Active Substance: DILTIAZEM HYDROCHLORIDE
     Indication: PROTEINURIA
  5. DILTIAZEM HYDROCHLORIDE. [Concomitant]
     Active Substance: DILTIAZEM HYDROCHLORIDE
     Indication: BLOOD PRESSURE ABNORMAL
     Dosage: UNK
     Route: 048
     Dates: start: 20121011
  6. METHYLPREDNISOLONE. [Suspect]
     Active Substance: METHYLPREDNISOLONE
     Indication: IGA NEPHROPATHY
     Dosage: 40 MG, 1X/DAY
     Dates: start: 20121011, end: 20130115
  7. CALTRATE WITH VITAMIN D [Concomitant]
     Active Substance: CALCIUM CARBONATE\CHOLECALCIFEROL
     Indication: MINERAL SUPPLEMENTATION
     Dosage: UNK
     Route: 048
     Dates: start: 20121217
  8. CALCITRIOL. [Concomitant]
     Active Substance: CALCITRIOL
     Indication: PROTEINURIA
     Dosage: UNK
     Route: 048
     Dates: start: 20121011

REACTIONS (3)
  - Pneumonia [Fatal]
  - Lung infection [Not Recovered/Not Resolved]
  - Sepsis [Not Recovered/Not Resolved]

NARRATIVE: CASE EVENT DATE: 20130113
